FAERS Safety Report 11456573 (Version 1)
Quarter: 2015Q3

REPORT INFORMATION
  Report Type: Report from Study
  Country: NL (occurrence: NL)
  Receive Date: 20150903
  Receipt Date: 20150903
  Transmission Date: 20151125
  Serious: Yes (Death)
  Sender: FDA-Public Use
  Company Number: NL-ABBVIE-15P-114-1455192-00

PATIENT
  Age: 92 Year
  Sex: Male
  Weight: 64 kg

DRUGS (1)
  1. LUCRIN DEPOT [Suspect]
     Active Substance: LEUPROLIDE ACETATE
     Indication: PROSTATE CANCER
     Route: 058
     Dates: start: 20150325

REACTIONS (1)
  - Death [Fatal]

NARRATIVE: CASE EVENT DATE: 20150712
